FAERS Safety Report 6545878-0 (Version None)
Quarter: 2010Q1

REPORT INFORMATION
  Report Type: 
  Country: None (occurrence: None)
  Receive Date: 20100121
  Receipt Date: 20090824
  Transmission Date: 20100710
  Serious: No
  Sender: FDA-Public Use
  Company Number: US-ALLERGAN-0911810US

PATIENT
  Sex: Male

DRUGS (1)
  1. TAZORAC CREAM UNSPECIFIED [Suspect]
     Indication: DRUG USE FOR UNKNOWN INDICATION
     Dosage: UNK

REACTIONS (3)
  - ERYTHEMA [None]
  - PAIN [None]
  - PRURITUS [None]
